FAERS Safety Report 9891463 (Version 2)
Quarter: 2014Q1

REPORT INFORMATION
  Report Type: Spontaneous
  Country: US (occurrence: US)
  Receive Date: 20140212
  Receipt Date: 20140228
  Transmission Date: 20141002
  Serious: Yes (Hospitalization, Other)
  Sender: FDA-Public Use
  Company Number: US-UCBSA-111832

PATIENT
  Sex: Male
  Weight: 79.54 kg

DRUGS (13)
  1. CIMZIA [Suspect]
     Indication: CROHN^S DISEASE
     Route: 058
  2. CIMZIA [Suspect]
     Indication: CROHN^S DISEASE
     Route: 058
     Dates: start: 2014
  3. DIFLUCAN [Concomitant]
     Route: 048
  4. OMEPRAZOLE [Concomitant]
     Dosage: 10 MG
     Route: 048
  5. FLONASE [Concomitant]
     Indication: NASAL CONGESTION
     Dosage: 2 SPRAYS AS NEEDED
     Route: 045
  6. IBUPROFEN [Concomitant]
     Dosage: 20 MG
  7. MULTIVITAMINS [Concomitant]
  8. SUDAFED [Concomitant]
  9. TYLENOL [Concomitant]
  10. VITAMIN B COMPLEX-VITAMIN C CAP [Concomitant]
  11. VITAMIN D [Concomitant]
     Dosage: 5000 UNIT
  12. DIFLUCAN [Concomitant]
  13. MESALAMINE [Concomitant]
     Indication: CROHN^S DISEASE
     Route: 048
     Dates: start: 20140129

REACTIONS (13)
  - Chronic lymphocytic leukaemia [Recovered/Resolved]
  - Sepsis [Unknown]
  - Rash pustular [Recovered/Resolved]
  - Oesophageal candidiasis [Unknown]
  - Oral candidiasis [Unknown]
  - Fistula [Unknown]
  - Oedema peripheral [Unknown]
  - Aphthous stomatitis [Unknown]
  - Gastritis [Unknown]
  - Haemorrhage [Unknown]
  - Fatigue [Unknown]
  - Asthenia [Unknown]
  - Weight decreased [Unknown]
